FAERS Safety Report 9395790 (Version 1)
Quarter: 2013Q3

REPORT INFORMATION
  Report Type: Spontaneous
  Country: CA (occurrence: CA)
  Receive Date: 20130711
  Receipt Date: 20130711
  Transmission Date: 20140515
  Serious: Yes (Hospitalization)
  Sender: FDA-Public Use
  Company Number: CA-GLAXOSMITHKLINE-A0801673A

PATIENT
  Age: 43 Year
  Sex: Female

DRUGS (2)
  1. TYKERB [Suspect]
     Indication: PRODUCT USED FOR UNKNOWN INDICATION
     Dosage: 1250MG UNKNOWN
     Route: 048
     Dates: start: 20090727
  2. XELODA [Suspect]
     Indication: PRODUCT USED FOR UNKNOWN INDICATION
     Route: 065

REACTIONS (2)
  - Disease progression [Not Recovered/Not Resolved]
  - Diarrhoea [Not Recovered/Not Resolved]
